FAERS Safety Report 8588195-X (Version None)
Quarter: 2012Q3

REPORT INFORMATION
  Report Type: 
  Country: None (occurrence: None)
  Receive Date: 20120731
  Receipt Date: 20120720
  Transmission Date: 20120928
  Serious: Yes (Hospitalization, Other)
  Sender: FDA-Public Use
  Company Number: AUR-APL-2012-02353

PATIENT
  Age: 57 Year
  Sex: Male

DRUGS (7)
  1. FLEXERIL [Suspect]
     Indication: PRODUCT USED FOR UNKNOWN INDICATION
     Dosage: 10 MG, DAILY;,ORAL
     Route: 048
  2. LISINOPRIL [Suspect]
     Indication: PRODUCT USED FOR UNKNOWN INDICATION
     Dosage: 10 MG, DAILY
  3. SPIRONOLACTONE [Suspect]
     Indication: PRODUCT USED FOR UNKNOWN INDICATION
     Dosage: 25 MG, DAILY, ORAL
     Route: 048
  4. NEXIUM [Suspect]
     Dosage: 40 MG, DAILY,ORAL
     Route: 048
  5. ATENOLOL [Suspect]
     Indication: PRODUCT USED FOR UNKNOWN INDICATION
     Dosage: 50 MG, DAILY,ORAL
     Route: 048
  6. GABAPENTIN [Suspect]
     Indication: PRODUCT USED FOR UNKNOWN INDICATION
     Dosage: ORAL
     Route: 048
  7. TRAMADOL HCL [Suspect]
     Indication: PRODUCT USED FOR UNKNOWN INDICATION
     Dosage: 50 MG, DAILY, ORAL
     Route: 048

REACTIONS (13)
  - OBESITY [None]
  - NICOTINE DEPENDENCE [None]
  - LIVER DISORDER [None]
  - PANCYTOPENIA [None]
  - CIRRHOSIS ALCOHOLIC [None]
  - OSTEOARTHRITIS [None]
  - GASTRIC VARICES [None]
  - GASTROOESOPHAGEAL REFLUX DISEASE [None]
  - ALCOHOL ABUSE [None]
  - VARICOSE VEIN [None]
  - HEPATITIS C [None]
  - SLEEP APNOEA SYNDROME [None]
  - ERECTILE DYSFUNCTION [None]
